FAERS Safety Report 10302099 (Version 1)
Quarter: 2014Q3

REPORT INFORMATION
  Report Type: Spontaneous
  Country: US (occurrence: US)
  Receive Date: 20140714
  Receipt Date: 20140714
  Transmission Date: 20150326
  Serious: Yes (Hospitalization, Other)
  Sender: FDA-Public Use
  Company Number: US-ABBVIE-14P-163-1256934-00

PATIENT
  Age: 65 Year

DRUGS (1)
  1. ANDROGEL [Suspect]
     Active Substance: TESTOSTERONE
     Indication: BLOOD TESTOSTERONE DECREASED
     Dates: start: 201012, end: 201107

REACTIONS (7)
  - Cerebrovascular accident [Unknown]
  - Myocardial infarction [Unknown]
  - Pain [Unknown]
  - Injury [Unknown]
  - Emotional distress [Unknown]
  - Deep vein thrombosis [Unknown]
  - Economic problem [Unknown]

NARRATIVE: CASE EVENT DATE: 20110824
